FAERS Safety Report 4831531-8 (Version None)
Quarter: 2005Q4

REPORT INFORMATION
  Report Type: 
  Country: None (occurrence: None)
  Receive Date: 20051114
  Receipt Date: 20051031
  Transmission Date: 20060501
  Serious: Yes (Hospitalization, Other)
  Sender: FDA-Public Use
  Company Number: 2005137978

PATIENT
  Age: 29 Year
  Sex: Female

DRUGS (9)
  1. LYRICA [Suspect]
     Indication: PAIN
     Dosage: 150 MG (150 MG, 1 IN 1 D), ORAL
     Route: 048
     Dates: start: 20050912, end: 20050919
  2. MINOCYCLINE HYDROCHLORIDE [Suspect]
     Indication: ILL-DEFINED DISORDER
     Dosage: ORAL
     Route: 048
  3. DIANE-35 (CYPROTERONE ACETATE, ETHINYLESTRADIOL) [Concomitant]
  4. XYLOCAINE [Concomitant]
  5. VERSED [Concomitant]
  6. FENTANYL [Concomitant]
  7. ONDANSETRON [Concomitant]
  8. DILAUDID [Concomitant]
  9. THERAPEUTIC RADIOPHARMACEUTICALS (THERAPEUTIC RADIOPHARMACEUTICALS) [Concomitant]

REACTIONS (8)
  - BLOOD CREATINE PHOSPHOKINASE INCREASED [None]
  - BLOOD THYROID STIMULATING HORMONE INCREASED [None]
  - DRUG INTERACTION [None]
  - IMPAIRED HEALING [None]
  - PERIPHERAL COLDNESS [None]
  - SKIN GRAFT [None]
  - SOMNOLENCE [None]
  - VASCULITIS NECROTISING [None]
